FAERS Safety Report 8399112 (Version 2)
Quarter: 2012Q4

REPORT INFORMATION
  Report Type: Report from Study
  Country: CO (occurrence: CO)
  Receive Date: 20120210
  Receipt Date: 20120920
  Transmission Date: 20130627
  Serious: Yes (Other)
  Sender: FDA-Public Use
  Company Number: CO-JNJFOC-20120200857

PATIENT
  Age: 76 Year
  Sex: Male
  Weight: 48 kg

DRUGS (5)
  1. ABIRATERONE ACETATE [Suspect]
     Indication: PROSTATE CANCER METASTATIC
     Route: 048
     Dates: start: 20120124
  2. ABIRATERONE ACETATE [Suspect]
     Indication: PROSTATE CANCER METASTATIC
     Route: 048
     Dates: start: 20111130, end: 20120120
  3. VERAPAMIL [Concomitant]
     Indication: HYPERTENSION
     Route: 048
     Dates: start: 2006
  4. HYDROCHLOROTHIAZIDE [Concomitant]
     Indication: HYPERTENSION
     Route: 048
     Dates: start: 2006
  5. LEVODOPA/CARBIDOPA [Concomitant]
     Indication: PARKINSON^S DISEASE
     Dosage: +#65279;Dose: 50/12.5 milligrams
     Route: 048
     Dates: start: 201110

REACTIONS (6)
  - Fatigue [Recovered/Resolved]
  - Amnesia [Recovered/Resolved]
  - Muscular weakness [Recovering/Resolving]
  - Disease progression [Unknown]
  - Muscle rigidity [Recovering/Resolving]
  - Bradykinesia [Recovering/Resolving]
